FAERS Safety Report 19622256 (Version 1)
Quarter: 2021Q3

REPORT INFORMATION
  Report Type: Spontaneous
  Country: FR (occurrence: FR)
  Receive Date: 20210728
  Receipt Date: 20210728
  Transmission Date: 20211014
  Serious: Yes (Hospitalization)
  Sender: FDA-Public Use
  Company Number: FR-UCBSA-2021035905

PATIENT
  Age: 6 Year
  Sex: Male

DRUGS (3)
  1. CLAFORAN [Suspect]
     Active Substance: CEFOTAXIME SODIUM
     Indication: PNEUMONIA ASPIRATION
     Dosage: UNK
     Route: 042
     Dates: start: 20210618, end: 20210624
  2. KEPPRA [Suspect]
     Active Substance: LEVETIRACETAM
     Indication: SEIZURE
     Dosage: 400 MG
     Route: 048
     Dates: start: 20210618, end: 20210629
  3. FLAGYL [METRONIDAZOLE BENZOATE] [Suspect]
     Active Substance: METRONIDAZOLE BENZOATE
     Indication: PNEUMONIA ASPIRATION
     Dosage: UNK
     Route: 042
     Dates: start: 20210618, end: 20210624

REACTIONS (3)
  - Transaminases increased [Recovered/Resolved]
  - Tremor [Recovered/Resolved]
  - Ataxia [Recovered/Resolved]

NARRATIVE: CASE EVENT DATE: 20210624
